FAERS Safety Report 4866530-3 (Version None)
Quarter: 2005Q4

REPORT INFORMATION
  Report Type: 
  Country: None (occurrence: None)
  Receive Date: 20051221
  Receipt Date: 20051213
  Transmission Date: 20060501
  Serious: Yes (Hospitalization, Other)
  Sender: FDA-Public Use
  Company Number: 2005167661

PATIENT
  Age: 56 Year
  Sex: Female
  Weight: 55.7924 kg

DRUGS (4)
  1. CELEBREX [Suspect]
     Indication: ARTHRITIS
     Dosage: (1 IN 1 D), ORAL
     Route: 048
     Dates: start: 20010101
  2. PREDNISONE [Suspect]
     Indication: RASH
  3. PREDNISONE [Suspect]
     Indication: URTICARIA
  4. FUROSEMIDE [Suspect]
     Indication: ILL-DEFINED DISORDER

REACTIONS (10)
  - ANAEMIA [None]
  - DRUG HYPERSENSITIVITY [None]
  - ERYTHEMA [None]
  - LIVEDO RETICULARIS [None]
  - MULTIPLE MYELOMA [None]
  - NERVOUS SYSTEM DISORDER [None]
  - PALPITATIONS [None]
  - SCAR [None]
  - SENSATION OF FOREIGN BODY [None]
  - URTICARIA [None]
